FAERS Safety Report 4711107-3 (Version None)
Quarter: 2005Q3

REPORT INFORMATION
  Report Type: 
  Country: None (occurrence: None)
  Receive Date: 20050708
  Receipt Date: 20050622
  Transmission Date: 20060218
  Serious: Yes (Death)
  Sender: FDA-Public Use
  Company Number: 200504873

PATIENT
  Age: 46 Year
  Sex: Male

DRUGS (9)
  1. BOTOX [Suspect]
     Indication: TORTICOLLIS
     Dosage: 200 UNITS PRN IM
     Route: 030
     Dates: start: 20040728, end: 20050530
  2. ARTANE [Concomitant]
  3. CLONAZEPAM [Concomitant]
  4. GRAMALIL [Concomitant]
  5. INDERAL [Concomitant]
  6. DEPAS [Concomitant]
  7. LUDIOMIL [Concomitant]
  8. PAXIL [Concomitant]
  9. AMOXAN [Concomitant]

REACTIONS (1)
  - ACUTE MYOCARDIAL INFARCTION [None]
